FAERS Safety Report 4964159-X (Version None)
Quarter: 2006Q1

REPORT INFORMATION
  Report Type: 
  Country: None (occurrence: None)
  Receive Date: 20060330
  Receipt Date: 20060307
  Transmission Date: 20060701
  Serious: Yes (Death)
  Sender: FDA-Public Use
  Company Number: 034

PATIENT
  Sex: Female

DRUGS (4)
  1. FAZACLO ODT [Suspect]
     Indication: SCHIZOPHRENIA
     Dosage: 100MG PO DAILY
     Dates: start: 20050921, end: 20060107
  2. NORVASC [Concomitant]
  3. RANITIDINE [Concomitant]
  4. METOPROLOL [Concomitant]

REACTIONS (1)
  - DEATH [None]
